FAERS Safety Report 6739031-5 (Version None)
Quarter: 2010Q2

REPORT INFORMATION
  Report Type: 
  Country: None (occurrence: None)
  Receive Date: 20100524
  Receipt Date: 20100524
  Transmission Date: 20101027
  Serious: Yes (Disabling)
  Sender: FDA-Public Use
  Company Number: None

PATIENT
  Age: 63 Year
  Sex: Female
  Weight: 90.7194 kg

DRUGS (2)
  1. TOPIRAMATE [Suspect]
     Indication: OFF LABEL USE
     Dosage: 1 TO 2 TABLETS AT BEDTIME PO
     Route: 048
     Dates: start: 20100419, end: 20100527
  2. TOPIRAMATE [Suspect]
     Indication: WEIGHT INCREASED
     Dosage: 1 TO 2 TABLETS AT BEDTIME PO
     Route: 048
     Dates: start: 20100419, end: 20100527

REACTIONS (3)
  - EYE PAIN [None]
  - PHOTOPHOBIA [None]
  - VISION BLURRED [None]
